FAERS Safety Report 5818845-X (Version None)
Quarter: 2008Q3

REPORT INFORMATION
  Report Type: 
  Country: None (occurrence: None)
  Receive Date: 20080723
  Receipt Date: 20080721
  Transmission Date: 20090109
  Serious: Yes (Hospitalization, Other)
  Sender: FDA-Public Use
  Company Number: US-BRISTOL-MYERS SQUIBB COMPANY-13747951

PATIENT
  Age: 45 Year
  Sex: Female

DRUGS (11)
  1. CYTOXAN [Suspect]
     Indication: BREAST CANCER
     Dosage: INITIATED ON 29AUG06
     Route: 041
     Dates: start: 20061006, end: 20061006
  2. TAXOL [Suspect]
     Indication: BREAST CANCER
     Dosage: DOSE REDUCED TO 130MG/M2 ON 27NOV06
     Route: 041
     Dates: start: 20061024, end: 20061024
  3. ADRIAMYCIN PFS [Suspect]
     Indication: BREAST CANCER
     Dosage: INITIATED ON 29AUG06
     Route: 041
     Dates: start: 20061006, end: 20061006
  4. NEULASTA [Suspect]
     Indication: BREAST CANCER
     Dosage: INITIATED ON 30AUG06
     Route: 058
     Dates: start: 20061011, end: 20061011
  5. BEVACIZUMAB [Suspect]
     Indication: BREAST CANCER
     Dosage: INITIATED ON 29AUG06
     Route: 042
     Dates: start: 20061024, end: 20061024
  6. PERCOCET [Concomitant]
     Indication: ARTHRITIS
     Route: 048
     Dates: start: 20060701
  7. PERCOCET [Concomitant]
     Indication: BACK PAIN
     Route: 048
     Dates: start: 20060701
  8. COMPAZINE [Concomitant]
     Indication: NAUSEA
     Route: 048
     Dates: start: 20060829
  9. ANZEMET [Concomitant]
     Indication: NAUSEA
     Route: 048
     Dates: start: 20060913
  10. AMBIEN [Concomitant]
     Indication: INSOMNIA
     Route: 048
     Dates: start: 20061002
  11. MEDROL [Concomitant]
     Indication: PAIN
     Dates: start: 20061027

REACTIONS (3)
  - GASTROENTERITIS [None]
  - HEPATITIS ACUTE [None]
  - MENTAL STATUS CHANGES [None]
